FAERS Safety Report 9360782 (Version 1)
Quarter: 2013Q2

REPORT INFORMATION
  Report Type: Spontaneous
  Country: IT (occurrence: None)
  Receive Date: 20130618
  Receipt Date: 20130618
  Transmission Date: 20140414
  Serious: Yes (Hospitalization)
  Sender: FDA-Public Use
  Company Number: AUR-APL-2013-04969

PATIENT
  Age: 59 Year
  Sex: Female

DRUGS (2)
  1. AMOXICILLIN (AMOXICILLIN) [Suspect]
     Indication: BRONCHITIS
     Dosage: 2 GM, 1 D
     Dates: start: 20130527, end: 20130531
  2. EUTIROX [Concomitant]

REACTIONS (3)
  - Abdominal pain [None]
  - Diarrhoea [None]
  - Vomiting [None]
